FAERS Safety Report 11681530 (Version 1)
Quarter: 2015Q4

REPORT INFORMATION
  Report Type: Report from Study
  Country: IN (occurrence: IN)
  Receive Date: 20151029
  Receipt Date: 20151029
  Transmission Date: 20160304
  Serious: Yes (Death)
  Sender: FDA-Public Use
  Company Number: IN-AMGEN-INDNI2015113324

PATIENT
  Age: 28 Year
  Sex: Female

DRUGS (1)
  1. PANITUMUMAB [Suspect]
     Active Substance: PANITUMUMAB
     Indication: COLORECTAL CANCER METASTATIC
     Dosage: 100 MG, UNK
     Route: 042
     Dates: start: 201504

REACTIONS (3)
  - Swelling [Unknown]
  - Fluid retention [Fatal]
  - Dyspnoea [Unknown]

NARRATIVE: CASE EVENT DATE: 201508
